FAERS Safety Report 8274244-5 (Version None)
Quarter: 2012Q2

REPORT INFORMATION
  Report Type: 
  Country: None (occurrence: None)
  Receive Date: 20120411
  Receipt Date: 20120404
  Transmission Date: 20120825
  Serious: Yes (Other)
  Sender: FDA-Public Use
  Company Number: JP-JNJFOC-20120305838

PATIENT
  Sex: Male

DRUGS (7)
  1. STELARA [Suspect]
     Indication: PSORIASIS
     Route: 058
     Dates: start: 20120215
  2. EPINASTINE HYDROCHLORIDE [Concomitant]
     Indication: PSORIASIS
     Route: 048
     Dates: start: 20061214
  3. STELARA [Suspect]
     Route: 058
     Dates: start: 20110707
  4. CANDESARTAN CILEXETIL [Concomitant]
     Indication: HYPERTENSION
     Route: 048
  5. AMLODIPINE BESYLATE [Concomitant]
     Route: 048
  6. STELARA [Suspect]
     Route: 058
     Dates: start: 20110824
  7. STELARA [Suspect]
     Route: 058
     Dates: start: 20111116

REACTIONS (2)
  - PLEURAL EFFUSION [None]
  - HEPATIC FUNCTION ABNORMAL [None]
